FAERS Safety Report 7341001-3 (Version None)
Quarter: 2011Q1

REPORT INFORMATION
  Report Type: 
  Country: None (occurrence: None)
  Receive Date: 20110309
  Receipt Date: 20110224
  Transmission Date: 20110831
  Serious: Yes (Death)
  Sender: FDA-Public Use
  Company Number: US-ELI_LILLY_AND_COMPANY-US201012000064

PATIENT
  Sex: Male

DRUGS (3)
  1. COREG [Concomitant]
     Dates: end: 20101021
  2. LISINOPRIL [Concomitant]
     Dates: end: 20101021
  3. ADCIRCA [Suspect]
     Dosage: 40 MG, DAILY (1/D)
     Route: 048
     Dates: end: 20101021

REACTIONS (3)
  - CORONARY ARTERY DISEASE [None]
  - ISCHAEMIC CARDIOMYOPATHY [None]
  - HYPOTENSION [None]
